FAERS Safety Report 14245139 (Version 1)
Quarter: 2017Q4

REPORT INFORMATION
  Report Type: Spontaneous
  Country: JP (occurrence: JP)
  Receive Date: 20171202
  Receipt Date: 20171202
  Transmission Date: 20180321
  Serious: Yes (Death)
  Sender: FDA-Public Use
  Company Number: JP-IMPAX LABORATORIES, INC-2017-IPXL-03384

PATIENT
  Age: 52 Year
  Sex: Male
  Weight: 69 kg

DRUGS (18)
  1. MORPHINE SULFATE EXTENDED-RELEASE [Suspect]
     Active Substance: MORPHINE SULFATE
     Dosage: 30 MG/ DAY, (5TH DAY)
     Route: 042
  2. HYDROXYZINE PAMOATE IR [Suspect]
     Active Substance: HYDROXYZINE PAMOATE
     Indication: PRODUCT USE IN UNAPPROVED INDICATION
  3. GRANISETRON [Suspect]
     Active Substance: GRANISETRON
     Indication: NAUSEA
     Dosage: 9 MG/DAY (2ND DAY)
     Route: 042
  4. KETAMINE [Suspect]
     Active Substance: KETAMINE
     Dosage: INCREASED TO 10 MG/HOUR (INFUSION ON 1ST DAY)
     Route: 050
  5. MORPHINE SULFATE EXTENDED-RELEASE [Suspect]
     Active Substance: MORPHINE SULFATE
     Dosage: 20 MG/DAY, (4TH DAY)
     Route: 042
  6. METOCLOPRAMIDE HYDROCHLORIDE IR [Suspect]
     Active Substance: METOCLOPRAMIDE HYDROCHLORIDE
     Indication: NAUSEA
     Dosage: 30 MG/DAY (3RD DAY)
     Route: 042
  7. KETAMINE [Suspect]
     Active Substance: KETAMINE
     Indication: PAIN
     Dosage: INFUSION AT 7 MG/HOUR
     Route: 050
  8. MORPHINE SULFATE EXTENDED-RELEASE [Suspect]
     Active Substance: MORPHINE SULFATE
     Dosage: 60, AND 90 MG/DAY, UNK (3RD DAY)
     Route: 065
  9. HYDROXYZINE PAMOATE IR [Suspect]
     Active Substance: HYDROXYZINE PAMOATE
     Indication: SLEEP DISORDER
     Dosage: 25 MG/DAY, (2ND DAY)
     Route: 042
  10. MORPHINE SULFATE EXTENDED-RELEASE [Suspect]
     Active Substance: MORPHINE SULFATE
     Dosage: 20 MG/DAY,
     Route: 042
  11. MORPHINE SULFATE EXTENDED-RELEASE [Suspect]
     Active Substance: MORPHINE SULFATE
     Dosage: 30 MG/ DAY, INCREASED (NEXT DAY)
     Route: 065
  12. KETAMINE [Suspect]
     Active Substance: KETAMINE
     Dosage: /10 MG, UNK
  13. MORPHINE SULFATE EXTENDED-RELEASE [Suspect]
     Active Substance: MORPHINE SULFATE
     Dosage: 40 MG/DAY (6TH DAY)
     Route: 042
  14. METOCLOPRAMIDE HYDROCHLORIDE IR [Suspect]
     Active Substance: METOCLOPRAMIDE HYDROCHLORIDE
     Indication: PRODUCT USE IN UNAPPROVED INDICATION
  15. HALOPERIDOL. [Suspect]
     Active Substance: HALOPERIDOL
     Indication: SLEEP DISORDER
     Dosage: 5 MG/DAY, (3RD DAY)
     Route: 042
  16. MORPHINE SULFATE EXTENDED-RELEASE [Suspect]
     Active Substance: MORPHINE SULFATE
     Indication: PAIN
     Dosage: 20 MG, DAILY
     Route: 065
  17. DOMPERIDONE [Suspect]
     Active Substance: DOMPERIDONE
     Indication: NAUSEA
     Dosage: 60 MG/DAY, (4TH DAY)
     Route: 065
  18. HALOPERIDOL. [Suspect]
     Active Substance: HALOPERIDOL
     Dosage: 20 MG/DAY, (4TH DAY)
     Route: 042

REACTIONS (5)
  - Death [Fatal]
  - Drug ineffective for unapproved indication [Unknown]
  - Sleep disorder [Recovered/Resolved]
  - Drug ineffective [Unknown]
  - Nausea [Recovered/Resolved]
